FAERS Safety Report 17628075 (Version 3)
Quarter: 2020Q2

REPORT INFORMATION
  Report Type: Report from Study
  Country: None (occurrence: BE)
  Receive Date: 20200405
  Receipt Date: 20200601
  Transmission Date: 20200713
  Serious: Yes (Hospitalization, Other)
  Sender: FDA-Public Use
  Company Number: BE-ABBVIE-20K-013-3350519-00

PATIENT
  Sex: Male
  Weight: 82 kg

DRUGS (3)
  1. DUODOPA [Suspect]
     Active Substance: CARBIDOPA\LEVODOPA
     Indication: PARKINSON^S DISEASE
     Dosage: UNKNOWN DOSAGES
     Route: 050
     Dates: start: 20120917, end: 20171214
  2. DUODOPA [Suspect]
     Active Substance: CARBIDOPA\LEVODOPA
     Dosage: MD=9ML, CD=4.1ML/HR DURING 16HRS, ED=3.3ML
     Route: 050
     Dates: start: 20171214, end: 202004
  3. DUODOPA [Suspect]
     Active Substance: CARBIDOPA\LEVODOPA
     Dosage: MD=9ML, CD=4.1ML/HR DURING 16HRS, ED=3.3ML
     Route: 050
     Dates: start: 2020

REACTIONS (8)
  - Pulmonary embolism [Unknown]
  - Ulcer [Recovered/Resolved]
  - Wrong technique in product usage process [Unknown]
  - Gastrointestinal inflammation [Recovered/Resolved]
  - Device dislocation [Recovered/Resolved]
  - Intestinal ulcer perforation [Recovered/Resolved]
  - Malaise [Unknown]
  - Abdominal pain [Recovered/Resolved]

NARRATIVE: CASE EVENT DATE: 202003
